FAERS Safety Report 16947852 (Version 8)
Quarter: 2020Q1

REPORT INFORMATION
  Report Type: Spontaneous
  Country: JP (occurrence: JP)
  Receive Date: 20191022
  Receipt Date: 20200102
  Transmission Date: 20200409
  Serious: Yes (Other)
  Sender: FDA-Public Use
  Company Number: JP-BEH-2019108238

PATIENT
  Age: 56 Year
  Sex: Female
  Weight: 55 kg

DRUGS (32)
  1. FELNABION [Concomitant]
     Dosage: PAP, TEMPORARY MEDICATION
  2. PRIVIGEN [Suspect]
     Active Substance: HUMAN IMMUNOGLOBULIN G
     Indication: CHRONIC INFLAMMATORY DEMYELINATING POLYRADICULONEUROPATHY
     Dosage: 5 GRAM (50ML, 1 VIAL), 1 DAY
     Route: 041
     Dates: start: 20191021, end: 20191025
  3. PREDNISOLONE. [Concomitant]
     Active Substance: PREDNISOLONE
     Dosage: 20 MILLIGRAM (4 TABLETS X 5MG), 1 DAY (IN THE MORNING), REGULARLY SCHEDULED ADMINISTRATION
     Route: 048
  4. LOXOPROFEN [Concomitant]
     Active Substance: LOXOPROFEN
     Dosage: 1 SHEET, PAP, 1 DAY (ADMINISTRATION SITE: SHOULDER), TEMPORARY MEDICATION
     Route: 061
  5. CALFINA [Concomitant]
     Active Substance: ALFACALCIDOL
     Dosage: 0.5 MICROGRAM, (1 TABLET), 1 DAY (IN THE MORNING), REGULARLY SCHEDULED ADMINISTRATION
     Route: 048
  6. ROSUVASTATIN. [Concomitant]
     Active Substance: ROSUVASTATIN
     Dosage: 2.5 MILLIGRAM (1 TABLET), 1 DAY (IN THE EVENING), REGULARLY SCHEDULED ADMINISTRATION
     Route: 048
  7. GLYCYRON [DL-METHIONINE;GLYCINE;GLYCYRRHIZIC ACID, AMMONIUM SALT] [Concomitant]
     Dosage: 1 TABLET, 8 HOURS (AFTER EVERY MEALS), REGULARLY SCHEDULED ADMINISTRATION
     Route: 048
  8. TULOBUTEROL [Concomitant]
     Active Substance: TULOBUTEROL
     Dosage: 1 SHEET (2MG), TAPES, 1 DAY (IN THE MORNING), TEMPORARY MEDICATION
  9. AMBROXOL [Concomitant]
     Active Substance: AMBROXOL
     Dosage: 15 MILLIGRAM (1 TABLET), 8 HOURS, TEMPORARY MEDICATION
     Route: 048
  10. HIZENTRA [Suspect]
     Active Substance: HUMAN IMMUNOGLOBULIN G
     Dosage: 12 GRAM (4G ? 3 VIALS), 1 WEEK (ADMINISTERED ALTERNATELY IN THE RIGHT AND LEFT THIGHS)
     Route: 058
     Dates: start: 20191125
  11. BIOFERMIN [BIFIDOBACTERIUM NOS] [Concomitant]
     Dosage: 1 TABLET, 8 HOURS (AFTER EVERY MEAL), REGULARLY SCHEDULED ADMINISTRATION
     Route: 048
  12. ELOBIXIBAT [Concomitant]
     Active Substance: ELOBIXIBAT
     Dosage: 10 MILLIGRAM (2 X 5MG TABLETS), 1 DAY (BEFORE BREAKFAST), REGULARLY SCHEDULED ADMINISTRATION
     Route: 048
  13. ALENDRONATE [Concomitant]
     Active Substance: ALENDRONATE SODIUM
     Dosage: 35 MILLIGRAM (1 TABLET), 1 WEEK (EVERY TUESDAY AT TIME OF AWAKENING), REGULARLY SCHEDULED ADMINISTRA
     Route: 048
  14. CINAL (ASCORBIC ACID\CALCIUM PANTOTHENATE) [Concomitant]
     Active Substance: ASCORBIC ACID\CALCIUM PANTOTHENATE
     Dosage: 1 GRAM GRANULES, 8 HOURS, REGULARLY SCHEDULED ADMINISTRATION
     Route: 048
  15. ADOAIR [Concomitant]
     Active Substance: FLUTICASONE PROPIONATE\SALMETEROL XINAFOATE
     Dosage: 1 BLISTER TWICE A DAY, IN THE MORNING AND EVENING, TEMPORARY MEDICATION
  16. BRONUCK [Concomitant]
     Active Substance: BROMFENAC SODIUM
     Dosage: TEMPORARY MEDICATION
  17. AMANTADINE. [Concomitant]
     Active Substance: AMANTADINE HYDROCHLORIDE
     Dosage: 50MG (1 TABLET), 1 DAY (IN THE MORNING), REGULARLY SCHEDULED ADMINISTRATION
     Route: 048
  18. CYMBALTA [Concomitant]
     Active Substance: DULOXETINE HYDROCHLORIDE
     Dosage: 2 CAPSULES, 1 DAY (BEFORE BEDTIME), REGULARLY SCHEDULED ADMINISTRATION
     Route: 048
  19. APHTASOLON [Concomitant]
     Indication: STOMATITIS
     Dosage: A FEW TIMES A DAY, TEMPORARY MEDICATION
  20. TAKECAB [Concomitant]
     Active Substance: VONOPRAZAN FUMURATE
     Dosage: 10MG (1 TABLET), 1 DAY (IN THE MORNING), REGULARLY SCHEDULED ADMINISTRATION
     Route: 048
  21. VITANEURIN [FURSULTIAMINE;HYDROXOCOBALAMIN;PYRIDOXAL PHOSPHATE] [Concomitant]
     Dosage: 50MG (1 CAPSULE), 1 DAY (IN THE MORNING), REGULARLY SCHEDULED ADMINISTRATION
     Route: 048
  22. DAIKENCHUTO [Concomitant]
     Active Substance: HERBALS
     Dosage: 5 GRAM, 8 HOURS (AFTER EVERY MEAL), REGULARLY SCHEDULED ADMINISTRATION
     Route: 065
  23. URSODEOXYCHOLIC ACID [Concomitant]
     Active Substance: URSODIOL
     Dosage: 50 MILLIGRAM (0.5 X 100MG TABLET), 8 HOURS (AFTER EVERY MEAL), REGULARLY SCHEDULED ADMINISTRATION
     Route: 048
  24. NEUROTROPIN [RABBIT VACCINIA EXTRACT] [Concomitant]
     Active Substance: ORYCTOLAGUS CUNICULUS SKIN
     Dosage: 2 TABLETS (2 X 4 UNITS/TABLET), 12 HOURS (IN THE MORNING AND EVENING), REGULARLY SCHEDULED ADMINISTR
     Route: 048
  25. LEVOCARNITINE. [Concomitant]
     Active Substance: LEVOCARNITINE
     Dosage: 250 MILLIGRAM (1 TABLET), 8 HOURS (AFTER EVERY MEAL), REGULARLY SCHEDULED ADMINISTRATION
     Route: 048
  26. NEOJODIN [Concomitant]
     Dosage: FOR GARGLING SEVERAL TIMES PER DAY, TEMPORARY MEDICATION
  27. BESOFTEN [Concomitant]
     Active Substance: PENTOSAN POLYSULFATE SODIUM
     Dosage: FOR DRIED REGION, TEMPORARY MEDICATION
  28. AZOPT [Concomitant]
     Active Substance: BRINZOLAMIDE
     Dosage: 12 HOURS (TWICE DAILY TO BOTH EYES), TEMPORARY MEDICATION
     Route: 047
  29. HIZENTRA [Suspect]
     Active Substance: HUMAN IMMUNOGLOBULIN G
     Indication: CHRONIC INFLAMMATORY DEMYELINATING POLYRADICULONEUROPATHY
     Dosage: 12 GRAM (4G ? 3 VIALS), ONCE PER WEEK
     Route: 058
     Dates: start: 20190729, end: 20191015
  30. HIZENTRA [Suspect]
     Active Substance: HUMAN IMMUNOGLOBULIN G
     Indication: CHRONIC INFLAMMATORY DEMYELINATING POLYRADICULONEUROPATHY
     Dosage: 12 GRAM (4G ? 3 VIALS), 1 WEEK (THE MOST RECENT DOSE BEFORE THE ONSET OF RECURRENCE OF CIDP)
     Route: 058
  31. DAIPHEN [Concomitant]
     Active Substance: SULFAMETHOXAZOLE\TRIMETHOPRIM
     Dosage: 1 TABLET, 2 DAYS (EVERY OTHER DAY IN THE MORNING), REGULARLY SCHEDULED ADMINISTRATION
     Route: 048
  32. ELIQUIS [Concomitant]
     Active Substance: APIXABAN
     Dosage: 2.5 MILLIGRAM (1 TABLET), 1 DAY (IN THE EVENING), TEMPORARY MEDICATION
     Route: 048

REACTIONS (3)
  - Injection site erythema [Recovered/Resolved]
  - Infusion site extravasation [Recovered/Resolved]
  - Chronic inflammatory demyelinating polyradiculoneuropathy [Recovered/Resolved]

NARRATIVE: CASE EVENT DATE: 20191015
